FAERS Safety Report 6687451-X (Version None)
Quarter: 2010Q2

REPORT INFORMATION
  Report Type: 
  Country: None (occurrence: None)
  Receive Date: 20100419
  Receipt Date: 20100409
  Transmission Date: 20101027
  Serious: Yes (Other)
  Sender: FDA-Public Use
  Company Number: US-ABBOTT-10P-163-0638016-00

PATIENT
  Sex: Female
  Weight: 63.56 kg

DRUGS (2)
  1. HUMIRA [Suspect]
     Indication: CROHN'S DISEASE
     Dosage: DAY 15
     Dates: start: 20100323
  2. PREDNISOLONE [Concomitant]
     Indication: CROHN'S DISEASE

REACTIONS (1)
  - RASH PRURITIC [None]
